FAERS Safety Report 4755999-0 (Version None)
Quarter: 2005Q3

REPORT INFORMATION
  Report Type: 
  Country: None (occurrence: None)
  Receive Date: 20050825
  Receipt Date: 20060606
  Transmission Date: 20060218
  Serious: Yes (Other)
  Sender: FDA-Public Use
  Company Number: WAES 0506USA01268

PATIENT
  Age: 47 Year
  Sex: Female
  Weight: 60.3284 kg

DRUGS (1)
  1. VYTORIN [Suspect]
     Dosage: 10-20 MG/BID/PO
     Route: 048

REACTIONS (6)
  - ARTHRALGIA [None]
  - ASTHENIA [None]
  - HEADACHE [None]
  - MYALGIA [None]
  - OVERDOSE [None]
  - PAIN IN EXTREMITY [None]
